FAERS Safety Report 17759126 (Version 1)
Quarter: 2020Q2

REPORT INFORMATION
  Report Type: Spontaneous
  Country: IT (occurrence: IT)
  Receive Date: 20200508
  Receipt Date: 20200508
  Transmission Date: 20200714
  Serious: Yes (Death, Life-Threatening, Other)
  Sender: FDA-Public Use
  Company Number: IT-AUROBINDO-AUR-APL-2020-021728

PATIENT
  Age: 66 Year
  Sex: Male

DRUGS (3)
  1. SILDENAFIL. [Suspect]
     Active Substance: SILDENAFIL
     Dosage: 100 MILLIGRAM
     Route: 048
  2. SILDENAFIL. [Suspect]
     Active Substance: SILDENAFIL
     Dosage: 50 MILLIGRAM
     Route: 048
  3. SILDENAFIL. [Suspect]
     Active Substance: SILDENAFIL
     Indication: PRODUCT USED FOR UNKNOWN INDICATION
     Dosage: 50-100 MG, 30-60 MIN BEFORE SEX FROM MORE THAN ONE YEAR
     Route: 048

REACTIONS (11)
  - Drug abuse [Fatal]
  - Drug level increased [Fatal]
  - Left ventricular hypertrophy [Fatal]
  - Aortic thrombosis [Fatal]
  - Toxicity to various agents [Fatal]
  - Pulmonary oedema [Fatal]
  - Pericardial haemorrhage [Fatal]
  - Aortic dissection [Fatal]
  - Cardiac tamponade [Fatal]
  - Angina pectoris [Fatal]
  - Circulatory collapse [Fatal]
